FAERS Safety Report 15075381 (Version 1)
Quarter: 2018Q2

REPORT INFORMATION
  Report Type: Spontaneous
  Country: US (occurrence: US)
  Receive Date: 20180627
  Receipt Date: 20180627
  Transmission Date: 20180711
  Serious: Yes (Hospitalization, Other)
  Sender: FDA-Public Use
  Company Number: US-SAOL THERAPEUTICS-2018SAO00316

PATIENT
  Age: 68 Year
  Sex: Male

DRUGS (1)
  1. BACLOFEN. [Suspect]
     Active Substance: BACLOFEN
     Dosage: 540.1 ?G, \DAY
     Route: 037

REACTIONS (3)
  - Device failure [Unknown]
  - Hypertonia [Unknown]
  - Tachycardia [Unknown]

NARRATIVE: CASE EVENT DATE: 20180224
